FAERS Safety Report 6101476-4 (Version None)
Quarter: 2009Q1

REPORT INFORMATION
  Report Type: 
  Country: None (occurrence: None)
  Receive Date: 20090227
  Receipt Date: 20081017
  Transmission Date: 20090719
  Serious: Yes (Other)
  Sender: FDA-Public Use
  Company Number: 2008S1019053

PATIENT
  Age: 17 Year
  Sex: Female
  Weight: 68.0396 kg

DRUGS (2)
  1. AMNESTEEM [Suspect]
     Indication: ACNE
     Dosage: 40 MG;DAILY;ORAL; 40 MG;DAILY;ORAL
     Route: 048
     Dates: start: 20080814, end: 20081009
  2. DROSPIRENONE AND ETHINYL ESTRADIOL [Suspect]
     Indication: CONTRACEPTION
     Dosage: ORAL
     Route: 048

REACTIONS (3)
  - DEPRESSED MOOD [None]
  - IRRITABILITY [None]
  - MOOD SWINGS [None]
